FAERS Safety Report 21082221 (Version 1)
Quarter: 2022Q3

REPORT INFORMATION
  Report Type: Spontaneous
  Country: PT (occurrence: PT)
  Receive Date: 20220714
  Receipt Date: 20220714
  Transmission Date: 20221026
  Serious: Yes (Hospitalization)
  Sender: FDA-Public Use
  Company Number: None

PATIENT
  Age: 77 Year
  Sex: Male
  Weight: 80 kg

DRUGS (10)
  1. BUPROPION [Suspect]
     Active Substance: BUPROPION
     Indication: Product used for unknown indication
     Dosage: UNIT DOSE: 150MG, FREQUENCY TIME: 1 DAYS, DURATION: 4 MONTHS
     Route: 065
     Dates: start: 20210305, end: 20210721
  2. LIDOCAINE [Suspect]
     Active Substance: LIDOCAINE
     Indication: Cystoscopy
     Dosage: DURATION: 0 DAYS
     Route: 065
     Dates: start: 20210709, end: 20210709
  3. GALANTAMINE HYDROBROMIDE [Suspect]
     Active Substance: GALANTAMINE HYDROBROMIDE
     Indication: Dementia
     Dosage: 8 MILLIGRAM DAILY; UNIT DOSE: 8MG, FREQUENCY TIME: 8 MG 1 X DAY, DURATION: 4 MONTHS
     Dates: start: 20210305, end: 20210721
  4. ESOMEPRAZOLE [Concomitant]
     Active Substance: ESOMEPRAZOLE
     Indication: Product used for unknown indication
     Dosage: UNIT DOSE: 20MG, FREQUENCY TIME: 1 DAYS, 20 MG 1+1
  5. NEBIVOLOL [Concomitant]
     Active Substance: NEBIVOLOL
     Indication: Product used for unknown indication
     Dosage: UNIT DOSE: 2.5MG, FREQUENCY TIME: 1 DAYS
  6. CHONDROITIN [Concomitant]
     Active Substance: CHONDROITIN
     Indication: Product used for unknown indication
     Dosage: UNIT DOSE: 1000MG, FREQUENCY TIME: 1 DAYS
  7. TROSPIUM CHLORIDE [Concomitant]
     Active Substance: TROSPIUM CHLORIDE
     Indication: Product used for unknown indication
     Dosage: 40 MILLIGRAM DAILY; STRENGTH: 20MG UNIT DOSE: 40MG, FREQUENCY TIME: OD
  8. CHLORTHALIDONE [Concomitant]
     Active Substance: CHLORTHALIDONE
     Indication: Product used for unknown indication
     Dosage: UNIT DOSE: 50MG, FREQUENCY TIME: 1 DAYS
  9. ALFUZOSIN [Concomitant]
     Active Substance: ALFUZOSIN
     Indication: Product used for unknown indication
     Dosage: UNIT DOSE: 10MG, FREQUENCY TIME: 1 DAYS
  10. BROMAZEPAM [Concomitant]
     Active Substance: BROMAZEPAM
     Indication: Product used for unknown indication
     Dosage: UNIT DOSE: 3MG, FREQUENCY TIME: 1 DAYS

REACTIONS (4)
  - Chromaturia [Recovered/Resolved]
  - Abdominal pain upper [Recovered/Resolved]
  - Hepatitis toxic [Recovered/Resolved]
  - Pyrexia [Recovered/Resolved]

NARRATIVE: CASE EVENT DATE: 20210713
